FAERS Safety Report 19439263 (Version 4)
Quarter: 2021Q3

REPORT INFORMATION
  Report Type: Spontaneous
  Country: TW (occurrence: TW)
  Receive Date: 20210618
  Receipt Date: 20210716
  Transmission Date: 20211014
  Serious: Yes (Hospitalization, Other)
  Sender: FDA-Public Use
  Company Number: TW-PFIZER INC-2021544471

PATIENT
  Age: 76 Year
  Sex: Male

DRUGS (1)
  1. XYNTHA [Suspect]
     Active Substance: ANTIHEMOPHILIC FACTOR, HUMAN RECOMBINANT RESIDUES 743-1636 DELETED
     Indication: FACTOR VIII DEFICIENCY
     Dosage: ON?DEMAND

REACTIONS (1)
  - Benign prostatic hyperplasia [Recovering/Resolving]
